FAERS Safety Report 7655484 (Version 5)
Quarter: 2013Q3

REPORT INFORMATION
  Report Type: Spontaneous
  Country: BR (occurrence: BR)
  Receive Date: 20101103
  Receipt Date: 20130905
  Transmission Date: 20140515
  Serious: Yes (Other)
  Sender: FDA-Public Use
  Company Number: BR-PFIZER INC-2010021208

PATIENT
  Age: 72 Year
  Sex: Male
  Weight: 80 kg

DRUGS (5)
  1. XALACOM [Suspect]
     Indication: GLAUCOMA
     Dosage: 3 UG OF LATANOPROST / 300UG OF TIMOLOL MALEATE
     Route: 047
  2. XALATAN [Suspect]
     Indication: GLAUCOMA
     Dosage: 3 UG, 1X/DAY
     Route: 047
     Dates: start: 20100210
  3. CAPTOPRIL [Suspect]
     Indication: HYPERTENSION
     Dosage: UNK
     Dates: start: 201004
  4. ZOLADEX [Suspect]
     Indication: PROSTATE CANCER
  5. BROMAZEPAM [Concomitant]
     Indication: FEELING OF RELAXATION
     Dosage: 3 MG, AS NEEDED

REACTIONS (14)
  - Circumstance or information capable of leading to medication error [Unknown]
  - Incorrect product storage [Unknown]
  - Drug dispensing error [Unknown]
  - Product name confusion [Unknown]
  - Wrong drug administered [Unknown]
  - Prostate cancer [Unknown]
  - Ulcer [Unknown]
  - Sinusitis [Not Recovered/Not Resolved]
  - Influenza [Unknown]
  - Ocular discomfort [Unknown]
  - Cough [Recovered/Resolved]
  - Hot flush [Unknown]
  - Pyrexia [Unknown]
  - Hyperhidrosis [Unknown]
